FAERS Safety Report 6662609-4 (Version None)
Quarter: 2010Q1

REPORT INFORMATION
  Report Type: 
  Country: None (occurrence: None)
  Receive Date: 20100329
  Receipt Date: 20100315
  Transmission Date: 20100710
  Serious: Yes (Death)
  Sender: FDA-Public Use
  Company Number: AMI0019229

PATIENT
  Age: 61 Year
  Sex: Female

DRUGS (9)
  1. TIMOLOL MALEATE [Suspect]
     Indication: GLAUCOMA
     Dosage: 1 DROP ONCE OD-OS - 046
     Dates: start: 20100305
  2. SANPILO [Concomitant]
  3. TROPICAMIDE [Concomitant]
  4. THEO-DUR [Concomitant]
  5. VOLTAREN [Concomitant]
  6. MERCAZOLE [Concomitant]
  7. MEPTIN [Concomitant]
  8. HOKUNALIN [Concomitant]
  9. MUCOSOLVAN [Concomitant]

REACTIONS (4)
  - ASTHMATIC CRISIS [None]
  - INTRAOCULAR PRESSURE INCREASED [None]
  - PULSE PRESSURE DECREASED [None]
  - RESPIRATORY ARREST [None]
